FAERS Safety Report 12496200 (Version 1)
Quarter: 2016Q2

REPORT INFORMATION
  Report Type: Spontaneous
  Country: AR (occurrence: AR)
  Receive Date: 20160624
  Receipt Date: 20160624
  Transmission Date: 20160815
  Serious: Yes (Death)
  Sender: FDA-Public Use
  Company Number: AR-PFIZER INC-2016307635

PATIENT
  Age: 45 Year
  Sex: Female

DRUGS (1)
  1. SUTENT [Suspect]
     Active Substance: SUNITINIB MALATE
     Indication: METASTATIC RENAL CELL CARCINOMA

REACTIONS (4)
  - Intracranial pressure increased [Fatal]
  - Disease progression [Unknown]
  - Metastatic renal cell carcinoma [Unknown]
  - Headache [Unknown]
